FAERS Safety Report 5812131-X (Version None)
Quarter: 2008Q3

REPORT INFORMATION
  Report Type: 
  Country: None (occurrence: None)
  Receive Date: 20080716
  Receipt Date: 20080707
  Transmission Date: 20090109
  Serious: Yes (Death, Hospitalization)
  Sender: FDA-Public Use
  Company Number: GB-BAUSCH-2008BL003010

PATIENT
  Age: 1 Year
  Sex: Male

DRUGS (4)
  1. DEXAMETHASONE [Suspect]
     Indication: ACUTE LYMPHOCYTIC LEUKAEMIA
  2. ASPARAGINASE [Suspect]
     Indication: ACUTE LYMPHOCYTIC LEUKAEMIA
  3. DOXORUBICIN HCL [Suspect]
     Indication: ACUTE LYMPHOCYTIC LEUKAEMIA
  4. VINCRISTINE SULFATE [Suspect]
     Indication: ACUTE LYMPHOCYTIC LEUKAEMIA

REACTIONS (9)
  - ADENOVIRAL HEPATITIS [None]
  - CATHETER RELATED INFECTION [None]
  - COAGULOPATHY [None]
  - CONGENITAL HERPES SIMPLEX INFECTION [None]
  - DIARRHOEA [None]
  - HEPATIC ENCEPHALOPATHY [None]
  - PSEUDOMONAS INFECTION [None]
  - RENAL IMPAIRMENT [None]
  - STAPHYLOCOCCAL INFECTION [None]
